FAERS Safety Report 9911454 (Version 2)
Quarter: 2014Q1

REPORT INFORMATION
  Report Type: Spontaneous
  Country: DE (occurrence: DE)
  Receive Date: 20140219
  Receipt Date: 20140326
  Transmission Date: 20141002
  Serious: Yes (Hospitalization, Other)
  Sender: FDA-Public Use
  Company Number: GXKR2014DE000923

PATIENT
  Age: 59 Year
  Sex: Female
  Weight: 78 kg

DRUGS (1)
  1. METFORMIN 1A PHARMA [Suspect]
     Indication: TYPE 2 DIABETES MELLITUS
     Dosage: 1500 MG, UNK
     Route: 048
     Dates: start: 20101007, end: 20101021

REACTIONS (3)
  - Facial paresis [Recovering/Resolving]
  - Diplopia [Recovering/Resolving]
  - Muscle spasms [Not Recovered/Not Resolved]
